FAERS Safety Report 8285813-0 (Version None)
Quarter: 2012Q2

REPORT INFORMATION
  Report Type: 
  Country: None (occurrence: None)
  Receive Date: 20120413
  Receipt Date: 20120404
  Transmission Date: 20120825
  Serious: Yes (Other)
  Sender: FDA-Public Use
  Company Number: US-ELI_LILLY_AND_COMPANY-US201106002458

PATIENT
  Sex: Female

DRUGS (6)
  1. OXYGEN [Concomitant]
     Indication: DYSPNOEA
     Dosage: UNK
  2. FORTEO [Suspect]
     Dosage: 20 UG, QD
     Dates: end: 20111101
  3. FORTEO [Suspect]
     Dosage: 20 UG, QD
     Dates: start: 20111201
  4. FORTEO [Suspect]
     Dosage: 20 UG, QD
  5. FORTEO [Suspect]
     Dosage: 20 UG, QD
     Dates: end: 20120201
  6. FORTEO [Suspect]
     Indication: OSTEOPOROSIS
     Dosage: 20 UG, QD
     Dates: start: 20110525

REACTIONS (29)
  - GASTROINTESTINAL DISORDER [None]
  - INGROWING NAIL [None]
  - MALAISE [None]
  - SNEEZING [None]
  - RHINORRHOEA [None]
  - SLEEP DISORDER [None]
  - NASOPHARYNGITIS [None]
  - MIDDLE INSOMNIA [None]
  - ARTHRALGIA [None]
  - DRUG DOSE OMISSION [None]
  - CORONARY ARTERY OCCLUSION [None]
  - CARDIOMEGALY [None]
  - HEART VALVE INCOMPETENCE [None]
  - ERYTHEMA [None]
  - LIMB INJURY [None]
  - INTESTINAL MASS [None]
  - MOVEMENT DISORDER [None]
  - FEELING COLD [None]
  - ABDOMINAL DISCOMFORT [None]
  - PAIN [None]
  - BONE PAIN [None]
  - BACK PAIN [None]
  - LOCALISED INFECTION [None]
  - MUSCULOSKELETAL PAIN [None]
  - PAIN IN EXTREMITY [None]
  - DYSPNOEA [None]
  - COUGH [None]
  - HAEMORRHAGE [None]
  - APPETITE DISORDER [None]
